FAERS Safety Report 7925027-4 (Version None)
Quarter: 2011Q4

REPORT INFORMATION
  Report Type: 
  Country: None (occurrence: None)
  Receive Date: 20111118
  Receipt Date: 20110331
  Transmission Date: 20120403
  Serious: No
  Sender: FDA-Public Use
  Company Number: US-AMGEN-USASP2011014195

PATIENT
  Age: 58 Year
  Sex: Female

DRUGS (2)
  1. METHOTREXATE [Concomitant]
  2. ENBREL [Suspect]
     Indication: RHEUMATOID ARTHRITIS
     Dosage: 50 MG, QWK
     Dates: start: 20100314

REACTIONS (5)
  - PRODUCTIVE COUGH [None]
  - SINUS HEADACHE [None]
  - UPPER RESPIRATORY TRACT INFECTION [None]
  - APHONIA [None]
  - EYE IRRITATION [None]
